FAERS Safety Report 5363258-0 (Version None)
Quarter: 2007Q2

REPORT INFORMATION
  Report Type: 
  Country: None (occurrence: None)
  Receive Date: 20070618
  Receipt Date: 20070618
  Transmission Date: 20071010
  Serious: No
  Sender: FDA-Public Use
  Company Number: None

PATIENT
  Age: 70 Year
  Sex: Female

DRUGS (5)
  1. LIPITOR [Suspect]
     Dates: start: 20051026, end: 20060116
  2. ATENOLOL [Concomitant]
  3. ASPIRIN [Concomitant]
  4. CALCIUM CHLORIDE [Concomitant]
  5. GLUCOSAMINE [Concomitant]

REACTIONS (7)
  - HEPATITIS [None]
  - HYPOTENSION [None]
  - LIVER INJURY [None]
  - MUSCULAR WEAKNESS [None]
  - MYALGIA [None]
  - NO THERAPEUTIC RESPONSE [None]
  - SINUSITIS [None]
